FAERS Safety Report 6422897-6 (Version None)
Quarter: 2009Q4

REPORT INFORMATION
  Report Type: 
  Country: None (occurrence: None)
  Receive Date: 20091102
  Receipt Date: 20091026
  Transmission Date: 20100525
  Serious: Yes (Hospitalization, Other)
  Sender: FDA-Public Use
  Company Number: CA-ROCHE-664981

PATIENT
  Age: 14 Year
  Sex: Male

DRUGS (14)
  1. MYCOPHENOLATE MOFETIL [Suspect]
     Indication: NEPHROTIC SYNDROME
     Route: 065
  2. RITUXIMAB [Suspect]
     Indication: FOCAL SEGMENTAL GLOMERULOSCLEROSIS
     Dosage: INFUSION.
     Route: 065
  3. RITUXIMAB [Suspect]
     Dosage: SINGLE DOSE
     Route: 065
  4. RITUXIMAB [Suspect]
     Dosage: TWO DOSES GIVEN: 5 WEEK AND 7 WEEK AFTER START OF THERAPY
     Route: 065
  5. RITUXIMAB [Suspect]
     Dosage: ADDITIONAL SINGLE DOSE
     Route: 065
  6. CYCLOPHOSPHAMIDE [Suspect]
     Indication: NEPHROTIC SYNDROME
     Route: 065
  7. LEVAMISOL [Suspect]
     Indication: NEPHROTIC SYNDROME
     Route: 065
  8. CYCLOSPORINE [Suspect]
     Indication: NEPHROTIC SYNDROME
     Route: 065
  9. CYCLOSPORINE [Suspect]
     Dosage: IN COMBINATION WITH MMF
     Route: 065
  10. PREDNISONE [Suspect]
     Indication: NEPHROTIC SYNDROME
     Route: 065
  11. PREDNISONE [Suspect]
     Dosage: ORAL.
     Route: 065
  12. PREDNISONE [Suspect]
     Route: 065
  13. PREDNISONE [Suspect]
     Dosage: DOSE TAPERED AND GRADUALLY STOPPED.
     Route: 065
  14. TACROLIMUS [Suspect]
     Indication: NEPHROTIC SYNDROME
     Route: 065

REACTIONS (11)
  - ACNE [None]
  - ADRENAL INSUFFICIENCY [None]
  - CUSHINGOID [None]
  - FATIGUE [None]
  - GINGIVAL HYPERPLASIA [None]
  - HIRSUTISM [None]
  - HYPERTENSION [None]
  - NEPHROTIC SYNDROME [None]
  - PYREXIA [None]
  - TACHYCARDIA [None]
  - TRAUMATIC LUNG INJURY [None]
